FAERS Safety Report 12679880 (Version 1)
Quarter: 2016Q3

REPORT INFORMATION
  Report Type: Spontaneous
  Country: US (occurrence: US)
  Receive Date: 20160824
  Receipt Date: 20160824
  Transmission Date: 20161109
  Serious: No
  Sender: FDA-Public Use
  Company Number: US-JNJFOC-20160618278

PATIENT
  Age: 84 Year
  Sex: Female
  Weight: 82.56 kg

DRUGS (3)
  1. LEVOTHYROXINE. [Concomitant]
     Active Substance: LEVOTHYROXINE
     Indication: THYROID DISORDER
     Route: 048
     Dates: start: 2001
  2. LISINOPRIL. [Concomitant]
     Active Substance: LISINOPRIL
     Indication: BLOOD PRESSURE ABNORMAL
     Route: 048
  3. KETOCONAZOLE. [Suspect]
     Active Substance: KETOCONAZOLE
     Indication: SKIN DISORDER
     Dosage: ONE APPLICATION
     Route: 061
     Dates: start: 20160614

REACTIONS (10)
  - Off label use [Unknown]
  - Skin ulcer [Recovering/Resolving]
  - Anxiety [Unknown]
  - Hair colour changes [Not Recovered/Not Resolved]
  - Pruritus [Not Recovered/Not Resolved]
  - Skin disorder [Recovering/Resolving]
  - Drug ineffective for unapproved indication [Unknown]
  - Alopecia [Recovering/Resolving]
  - Hair texture abnormal [Not Recovered/Not Resolved]
  - Product use issue [Unknown]

NARRATIVE: CASE EVENT DATE: 2016
